FAERS Safety Report 15720773 (Version 1)
Quarter: 2018Q4

REPORT INFORMATION
  Report Type: Report from Study
  Country: None (occurrence: CO)
  Receive Date: 20181213
  Receipt Date: 20181213
  Transmission Date: 20190205
  Serious: Yes (Death)
  Sender: FDA-Public Use
  Company Number: CO-ABBVIE-18S-036-2589877-00

PATIENT
  Age: 71 Year
  Sex: Male
  Weight: 82 kg

DRUGS (1)
  1. ZEMPLAR [Suspect]
     Active Substance: PARICALCITOL
     Indication: HYPERPARATHYROIDISM SECONDARY
     Dosage: POSTDIALYSIS
     Route: 048
     Dates: start: 20181003, end: 20181106

REACTIONS (3)
  - Cough [Not Recovered/Not Resolved]
  - Cardiac failure [Fatal]
  - Abdominal pain [Not Recovered/Not Resolved]

NARRATIVE: CASE EVENT DATE: 201811
